FAERS Safety Report 6470366-X (Version None)
Quarter: 2009Q4

REPORT INFORMATION
  Report Type: 
  Country: None (occurrence: None)
  Receive Date: 20091203
  Receipt Date: 20091123
  Transmission Date: 20100525
  Serious: Yes (Other)
  Sender: FDA-Public Use
  Company Number: US-PFIZER INC-2009203943

PATIENT
  Sex: Female

DRUGS (12)
  1. SUTENT [Suspect]
     Indication: METASTATIC RENAL CELL CARCINOMA
     Dosage: 50 MG, 1X/DAY
     Route: 048
     Dates: start: 20080528
  2. MIRALAX [Concomitant]
     Dosage: UNK
  3. ZOFRAN [Concomitant]
     Dosage: 8 MG, UNK
  4. ATIVAN [Concomitant]
     Dosage: 0.5 MG, UNK
  5. CALCIUM WITH VITAMIN D [Concomitant]
     Dosage: UNK
  6. CITALOPRAM [Concomitant]
     Dosage: 20 MG, UNK
  7. ACETAMINOPHEN AND HYDROCODONE BITARTRATE [Concomitant]
     Dosage: 5/325 MG
  8. LISINOPRIL [Concomitant]
     Dosage: 10 MG, UNK
  9. SIMVASTATIN [Concomitant]
     Dosage: 10 MG, UNK
  10. SYNTHROID [Concomitant]
     Dosage: 50 UG, UNK
  11. ASCORBIC ACID [Concomitant]
     Dosage: 500 MG, UNK
  12. VITAMIN D [Concomitant]
     Dosage: 50.000 IU, UNK

REACTIONS (8)
  - BLOOD LACTATE DEHYDROGENASE INCREASED [None]
  - BLOOD PRESSURE INCREASED [None]
  - CONSTIPATION [None]
  - DECREASED APPETITE [None]
  - PALMAR-PLANTAR ERYTHRODYSAESTHESIA SYNDROME [None]
  - RENAL IMPAIRMENT [None]
  - THROMBOCYTOPENIA [None]
  - WHITE BLOOD CELL COUNT DECREASED [None]
